FAERS Safety Report 24913508 (Version 1)
Quarter: 2025Q1

REPORT INFORMATION
  Report Type: Spontaneous
  Country: US (occurrence: US)
  Receive Date: 20250201
  Receipt Date: 20250201
  Transmission Date: 20250408
  Serious: No
  Sender: MERCK
  Company Number: US-009507513-2501USA005563

PATIENT
  Age: 66 Year
  Sex: Male

DRUGS (3)
  1. KEYTRUDA [Suspect]
     Active Substance: PEMBROLIZUMAB
     Indication: Lung squamous cell carcinoma stage IV
     Dates: start: 20230329, end: 20230608
  2. CARBOPLATIN [Suspect]
     Active Substance: CARBOPLATIN
     Indication: Lung squamous cell carcinoma stage IV
     Dates: start: 20230329, end: 20230608
  3. PACLITAXEL [Suspect]
     Active Substance: PACLITAXEL
     Indication: Lung squamous cell carcinoma stage IV
     Dates: start: 20230329, end: 20230608

REACTIONS (1)
  - Toxicity to various agents [Recovered/Resolved]

NARRATIVE: CASE EVENT DATE: 20230329
